FAERS Safety Report 8085595-1 (Version None)
Quarter: 2012Q1

REPORT INFORMATION
  Report Type: 
  Country: None (occurrence: None)
  Receive Date: 20120128
  Receipt Date: 20110402
  Transmission Date: 20120608
  Serious: No
  Sender: FDA-Public Use
  Company Number: US-ABBOTT-11P-163-0716017-00

PATIENT
  Age: 30 Year
  Sex: Male

DRUGS (8)
  1. LORTAB [Concomitant]
     Indication: PAIN
     Dosage: 7.5/500/15MG USE 5ML
  2. HUMIRA [Suspect]
     Indication: CROHN'S DISEASE
     Dates: start: 20110101
  3. CALMOCEPTINE [Concomitant]
     Indication: RASH
  4. VALIUM [Concomitant]
     Indication: DRUG THERAPY
     Dosage: 2ML (5MG/15ML)
  5. TYLENOL PM [Concomitant]
     Indication: INSOMNIA
  6. NYSTATIN [Concomitant]
     Indication: RASH
  7. BISMUTH SUBSALICYLATE [Concomitant]
     Indication: NAUSEA
  8. DESITIN [Concomitant]
     Indication: RASH

REACTIONS (2)
  - INJECTION SITE ERYTHEMA [None]
  - SKIN PAPILLOMA [None]
